FAERS Safety Report 11724369 (Version 1)
Quarter: 2015Q4

REPORT INFORMATION
  Report Type: Spontaneous
  Country: GB (occurrence: GB)
  Receive Date: 20151111
  Receipt Date: 20151111
  Transmission Date: 20160304
  Serious: Yes (Other)
  Sender: FDA-Public Use
  Company Number: GB-ROCHE-1652242

PATIENT
  Age: 70 Year
  Sex: Female
  Weight: 53.7 kg

DRUGS (1)
  1. KADCYLA [Suspect]
     Active Substance: ADO-TRASTUZUMAB EMTANSINE
     Indication: BREAST CANCER
     Route: 042
     Dates: start: 20151020

REACTIONS (6)
  - Dizziness [Recovered/Resolved]
  - Restlessness [Recovered/Resolved]
  - Body temperature increased [Recovered/Resolved]
  - Dyspnoea [Recovered/Resolved]
  - Chills [Unknown]
  - Aphasia [Unknown]

NARRATIVE: CASE EVENT DATE: 20151020
